FAERS Safety Report 15290653 (Version 1)
Quarter: 2018Q3

REPORT INFORMATION
  Report Type: Spontaneous
  Country: US (occurrence: US)
  Receive Date: 20180817
  Receipt Date: 20180817
  Transmission Date: 20181010
  Serious: No
  Sender: FDA-Public Use
  Company Number: US-009507513-1807USA009130

PATIENT
  Age: 63 Year
  Sex: Female

DRUGS (4)
  1. MEFLOQUINE [Concomitant]
     Active Substance: MEFLOQUINE
     Indication: JC VIRUS INFECTION
     Dosage: 250 MG WEEKLY
  2. REMERON [Suspect]
     Active Substance: MIRTAZAPINE
     Indication: JC VIRUS INFECTION
  3. REMERON [Suspect]
     Active Substance: MIRTAZAPINE
     Indication: PROGRESSIVE MULTIFOCAL LEUKOENCEPHALOPATHY
     Dosage: 30 MG, DAILY
     Route: 048
  4. MEFLOQUINE [Concomitant]
     Active Substance: MEFLOQUINE
     Indication: PROGRESSIVE MULTIFOCAL LEUKOENCEPHALOPATHY
     Dosage: 250 MG DAILY FOR 3 DAYS

REACTIONS (1)
  - Product use in unapproved indication [Unknown]
